FAERS Safety Report 9234574 (Version 5)
Quarter: 2013Q3

REPORT INFORMATION
  Report Type: Spontaneous
  Country: US (occurrence: US)
  Receive Date: 20130416
  Receipt Date: 20130710
  Transmission Date: 20140515
  Serious: Yes (Hospitalization, Other)
  Sender: FDA-Public Use
  Company Number: US-PFIZER INC-2013117482

PATIENT
  Age: 67 Year
  Sex: Male
  Weight: 79.82 kg

DRUGS (12)
  1. SUTENT [Suspect]
     Indication: BONE CANCER
     Dosage: 50 MG, DAILY, CYCLIC
     Dates: start: 20130405, end: 201306
  2. SUTENT [Suspect]
     Indication: RENAL CELL CARCINOMA
     Dosage: 50 MG, 1X/DAY
     Route: 048
     Dates: start: 201306, end: 20130630
  3. LISINOPRIL [Concomitant]
     Indication: HYPERTENSION
     Dosage: 40 MG, 1X/DAY
  4. CALCIUM [Concomitant]
     Dosage: UNK
  5. ZOFRAN [Concomitant]
     Dosage: UNK
  6. COMPAZINE [Concomitant]
     Dosage: UNK
  7. VITAMIN D [Concomitant]
     Dosage: UNK
  8. CALCIUM WITH VITAMIN D [Concomitant]
     Dosage: UNK
  9. HYDROCODONE [Concomitant]
     Dosage: 7.5/325 MG, EVERY 4 HRS
  10. ZOLPIDEM [Concomitant]
     Indication: SLEEP DISORDER
     Dosage: 10 MG, 1X/DAY
  11. FUROSEMIDE [Concomitant]
     Indication: BLOOD POTASSIUM INCREASED
     Dosage: 40 MG, 1X/DAY
  12. SODIUM [Concomitant]
     Indication: BLOOD POTASSIUM INCREASED
     Dosage: 650 MG, 2X/DAY

REACTIONS (14)
  - Renal failure [Unknown]
  - Dehydration [Recovering/Resolving]
  - Nausea [Recovering/Resolving]
  - Vomiting [Recovering/Resolving]
  - Intestinal obstruction [Unknown]
  - Off label use [Unknown]
  - Nausea [Unknown]
  - Asthenia [Recovered/Resolved]
  - Headache [Recovered/Resolved]
  - Diarrhoea [Recovered/Resolved]
  - Decreased appetite [Unknown]
  - Weight decreased [Unknown]
  - Hiccups [Unknown]
  - Eructation [Unknown]
